FAERS Safety Report 14346977 (Version 3)
Quarter: 2018Q1

REPORT INFORMATION
  Report Type: Spontaneous
  Country: US (occurrence: US)
  Receive Date: 20180103
  Receipt Date: 20180227
  Transmission Date: 20180509
  Serious: No
  Sender: FDA-Public Use
  Company Number: US-PFIZER INC-2018000824

PATIENT
  Age: 64 Year
  Sex: Female

DRUGS (2)
  1. LETROZOLE. [Concomitant]
     Active Substance: LETROZOLE
     Dosage: UNK
     Dates: start: 20160530
  2. IBRANCE [Suspect]
     Active Substance: PALBOCICLIB
     Indication: BREAST CANCER STAGE IV
     Dosage: 125 MG, DAILY
     Dates: start: 20170612

REACTIONS (5)
  - Lacrimation increased [Not Recovered/Not Resolved]
  - Full blood count decreased [Recovered/Resolved]
  - Stomatitis [Recovered/Resolved]
  - Sinusitis [Recovered/Resolved]
  - Alopecia [Unknown]
